FAERS Safety Report 19905926 (Version 1)
Quarter: 2021Q3

REPORT INFORMATION
  Report Type: Spontaneous
  Country: US (occurrence: US)
  Receive Date: 20210930
  Receipt Date: 20210930
  Transmission Date: 20211014
  Serious: No
  Sender: FDA-Public Use
  Company Number: None

PATIENT
  Age: 40 Year
  Sex: Female

DRUGS (1)
  1. EVEROLIMUS TAB  7.5MG [Suspect]
     Active Substance: EVEROLIMUS
     Dosage: ?          OTHER DOSE:7.5MG;?
     Route: 048
     Dates: start: 202107

REACTIONS (5)
  - Oral discomfort [None]
  - Product packaging issue [None]
  - Product physical issue [None]
  - Stomatitis [None]
  - Lip swelling [None]

NARRATIVE: CASE EVENT DATE: 20210930
